FAERS Safety Report 8540563-8 (Version None)
Quarter: 2012Q3

REPORT INFORMATION
  Report Type: 
  Country: None (occurrence: None)
  Receive Date: 20120726
  Receipt Date: 20110805
  Transmission Date: 20120928
  Serious: No
  Sender: FDA-Public Use
  Company Number: US-ASTRAZENECA-2011SE46938

PATIENT
  Age: 54 Year
  Sex: Female

DRUGS (4)
  1. SEROQUEL XR [Suspect]
     Indication: BIPOLAR DISORDER
     Route: 048
     Dates: start: 20040101
  2. HYDROX-PAM [Concomitant]
  3. STOMACH MEDICATION [Concomitant]
  4. SEROQUEL XR [Suspect]
     Route: 048
     Dates: start: 20110701

REACTIONS (2)
  - GASTRIC DISORDER [None]
  - FATIGUE [None]
